FAERS Safety Report 9382552 (Version 1)
Quarter: 2013Q3

REPORT INFORMATION
  Report Type: Spontaneous
  Country: AU (occurrence: AU)
  Receive Date: 20130703
  Receipt Date: 20130703
  Transmission Date: 20140515
  Serious: Yes (Death, Other)
  Sender: FDA-Public Use
  Company Number: AU-GILEAD-2013-0078078

PATIENT
  Age: 55 Year
  Sex: Male

DRUGS (6)
  1. VISTIDE [Suspect]
     Indication: BK VIRUS INFECTION
     Dosage: 0.3 MG/KG, Q2WK
  2. VISTIDE [Suspect]
     Indication: BLADDER TRANSITIONAL CELL CARCINOMA
  3. TACROLIMUS [Concomitant]
     Dosage: UNK
  4. PREDNISOLONE [Concomitant]
  5. AZATHIOPRINE [Concomitant]
     Dosage: 75 MG, QD
     Dates: end: 200706
  6. AZATHIOPRINE [Concomitant]
     Dosage: 50 MG, QD
     Dates: start: 200706

REACTIONS (1)
  - Drug ineffective for unapproved indication [Fatal]
